FAERS Safety Report 12196133 (Version 2)
Quarter: 2016Q2

REPORT INFORMATION
  Report Type: Spontaneous
  Country: US (occurrence: US)
  Receive Date: 20160321
  Receipt Date: 20160512
  Transmission Date: 20160815
  Serious: Yes (Other)
  Sender: FDA-Public Use
  Company Number: US-ELI_LILLY_AND_COMPANY-US201603004141

PATIENT
  Age: 64 Year
  Sex: Male
  Weight: 72.56 kg

DRUGS (1)
  1. CYRAMZA [Suspect]
     Active Substance: RAMUCIRUMAB
     Indication: OESOPHAGEAL ADENOCARCINOMA METASTATIC
     Dosage: 585 MG, CYCLICAL
     Route: 042
     Dates: start: 20151030, end: 20160214

REACTIONS (2)
  - Osteonecrosis of jaw [Recovering/Resolving]
  - Tooth abscess [Recovering/Resolving]
